FAERS Safety Report 9216696 (Version 1)
Quarter: 2013Q2

REPORT INFORMATION
  Report Type: Spontaneous
  Country: IT (occurrence: None)
  Receive Date: 20130404
  Receipt Date: 20130404
  Transmission Date: 20140414
  Serious: No
  Sender: FDA-Public Use
  Company Number: 1303ITA012494

PATIENT
  Age: 57 Year
  Sex: Male

DRUGS (5)
  1. CEDAX (CEFTIBUTEN) CAPSULE [Suspect]
     Indication: COUGH
     Route: 048
     Dates: start: 20130130, end: 20130131
  2. EUTIROX (LEVOTHYROXINE SODIUM) [Concomitant]
  3. LYRICA (PREGABALIN) [Concomitant]
  4. ARCOXIA 90 MG COMPRESSE RIVESTITE CON FILM (ETORICOXIB) [Concomitant]
  5. DICLOREUM (DICLOFENAC SODIUM) [Concomitant]

REACTIONS (3)
  - Chest pain [None]
  - Nausea [None]
  - Vomiting [None]
